FAERS Safety Report 26214086 (Version 1)
Quarter: 2025Q4

REPORT INFORMATION
  Report Type: Spontaneous
  Country: CN (occurrence: CN)
  Receive Date: 20251230
  Receipt Date: 20251230
  Transmission Date: 20260118
  Serious: Yes (Other)
  Sender: NOVARTIS
  Company Number: CN-002147023-NVSC2025CN197774

PATIENT
  Age: 75 Year
  Sex: Female
  Weight: 72 kg

DRUGS (1)
  1. SACUBITRIL\VALSARTAN [Suspect]
     Active Substance: SACUBITRIL\VALSARTAN
     Indication: Hypertension
     Dosage: 200.000 MG, BID
     Route: 048
     Dates: start: 20251028, end: 20251223

REACTIONS (4)
  - Blood potassium increased [Recovering/Resolving]
  - Asthenia [Unknown]
  - Gait disturbance [Unknown]
  - Myalgia [Unknown]

NARRATIVE: CASE EVENT DATE: 20251222
